FAERS Safety Report 11181490 (Version 2)
Quarter: 2015Q3

REPORT INFORMATION
  Report Type: Report from Study
  Country: CH (occurrence: CH)
  Receive Date: 20150611
  Receipt Date: 20150710
  Transmission Date: 20151125
  Serious: Yes (Other)
  Sender: FDA-Public Use
  Company Number: CH-BRISTOL-MYERS SQUIBB COMPANY-BMS-2015-034414

PATIENT
  Age: 58 Year
  Sex: Male

DRUGS (3)
  1. CETUXIMAB [Suspect]
     Active Substance: CETUXIMAB
     Indication: NON-SMALL CELL LUNG CANCER
     Dosage: 600 UNK, UNK
     Route: 042
     Dates: start: 20150310, end: 20150413
  2. CISPLATIN. [Suspect]
     Active Substance: CISPLATIN
     Indication: NON-SMALL CELL LUNG CANCER
     Dosage: 70 MG, UNK
     Route: 042
     Dates: start: 20150310, end: 20150330
  3. DOCETAXEL. [Suspect]
     Active Substance: DOCETAXEL
     Indication: NON-SMALL CELL LUNG CANCER
     Dosage: 130 MG, UNK
     Route: 042
     Dates: start: 20150310, end: 20150330

REACTIONS (1)
  - Hepatitis viral [Recovered/Resolved]

NARRATIVE: CASE EVENT DATE: 20150413
